FAERS Safety Report 5810441-3 (Version None)
Quarter: 2008Q3

REPORT INFORMATION
  Report Type: 
  Country: None (occurrence: None)
  Receive Date: 20080715
  Receipt Date: 20080705
  Transmission Date: 20090109
  Serious: Yes (Hospitalization, Other)
  Sender: FDA-Public Use
  Company Number: US-PFIZER INC-2008042184

PATIENT
  Sex: Female
  Weight: 83.9 kg

DRUGS (17)
  1. LIPITOR [Suspect]
     Indication: BLOOD CHOLESTEROL INCREASED
     Route: 048
  2. LIPITOR [Suspect]
     Indication: LOW DENSITY LIPOPROTEIN INCREASED
  3. PLAVIX [Concomitant]
  4. ISOSORBIDE DINITRATE [Concomitant]
  5. LASIX [Concomitant]
  6. MIRAPEX [Concomitant]
  7. LEXAPRO [Concomitant]
  8. POTASSIUM CHLORIDE [Concomitant]
  9. GABAPENTIN [Concomitant]
  10. XALATAN [Concomitant]
     Route: 047
  11. MIRALAX [Concomitant]
  12. PREVACID [Concomitant]
  13. AMBIEN [Concomitant]
  14. POLYETHYLENE GLYCOL [Concomitant]
  15. NITROGLYCERIN [Concomitant]
     Route: 060
  16. IRON [Concomitant]
  17. VITAMIN B-12 [Concomitant]

REACTIONS (10)
  - ARRHYTHMIA [None]
  - ATRIAL FIBRILLATION [None]
  - BLOOD CALCIUM DECREASED [None]
  - BODY HEIGHT DECREASED [None]
  - CORONARY ARTERIAL STENT INSERTION [None]
  - DEEP VEIN THROMBOSIS [None]
  - OESOPHAGEAL ACHALASIA [None]
  - OESOPHAGEAL STENOSIS [None]
  - PARKINSON'S DISEASE [None]
  - PRESYNCOPE [None]
